FAERS Safety Report 7903540-3 (Version None)
Quarter: 2011Q4

REPORT INFORMATION
  Report Type: 
  Country: None (occurrence: None)
  Receive Date: 20111109
  Receipt Date: 20111109
  Transmission Date: 20120403
  Serious: No
  Sender: FDA-Public Use
  Company Number: None

PATIENT
  Age: 62 Year
  Sex: Female
  Weight: 88.45 kg

DRUGS (1)
  1. CRESTOR [Suspect]

REACTIONS (5)
  - GAIT DISTURBANCE [None]
  - MUSCULAR WEAKNESS [None]
  - ARTHRALGIA [None]
  - PAIN [None]
  - MUSCLE DISORDER [None]
